FAERS Safety Report 12037261 (Version 1)
Quarter: 2016Q1

REPORT INFORMATION
  Report Type: Report from Study
  Country: US (occurrence: US)
  Receive Date: 20160208
  Receipt Date: 20160208
  Transmission Date: 20160526
  Serious: No
  Sender: FDA-Public Use
  Company Number: PHHY2012US132671

PATIENT
  Sex: Female

DRUGS (20)
  1. ADVAIR HFA [Concomitant]
     Active Substance: FLUTICASONE PROPIONATE\SALMETEROL XINAFOATE
     Dosage: 1 DF (1 PUFF), BIW
     Route: 055
     Dates: start: 20111227, end: 20120326
  2. NASONEX [Concomitant]
     Active Substance: MOMETASONE FUROATE
     Indication: PRODUCT USED FOR UNKNOWN INDICATION
     Dosage: 50 MCG/ACT, USE 1 SPRAY IN EACH NOSTRIL TWICE DAILY
     Route: 045
     Dates: start: 20111014
  3. TYLENOL [Concomitant]
     Active Substance: ACETAMINOPHEN
     Indication: SINUS CONGESTION
     Dosage: 2 DF, Q4H
     Route: 048
     Dates: start: 20120326
  4. ADVAIR HFA [Concomitant]
     Active Substance: FLUTICASONE PROPIONATE\SALMETEROL XINAFOATE
     Indication: PRODUCT USED FOR UNKNOWN INDICATION
     Dosage: 1 DF (1 PUFF), 1 IN 1 D
     Route: 055
     Dates: start: 20111227, end: 20120326
  5. MOBIC [Concomitant]
     Active Substance: MELOXICAM
     Indication: PRODUCT USED FOR UNKNOWN INDICATION
     Dosage: 7.5 MG, QD (1 IN 1 DAY)
     Route: 048
  6. FLUTICASONE PROPIONATE. [Concomitant]
     Active Substance: FLUTICASONE PROPIONATE
     Indication: PRODUCT USED FOR UNKNOWN INDICATION
     Dosage: 50 UG, UNK
     Route: 045
     Dates: start: 20111223, end: 20120724
  7. XOLAIR [Suspect]
     Active Substance: OMALIZUMAB
     Indication: ASTHMA
     Dosage: 150 MG, EVERY 4 WEEKS
     Route: 058
  8. XOLAIR [Suspect]
     Active Substance: OMALIZUMAB
     Dosage: 150 MG, EVERY 4 WEEKS
     Route: 058
     Dates: start: 20120202, end: 20120202
  9. PREDNISONE. [Concomitant]
     Active Substance: PREDNISONE
     Indication: PRODUCT USED FOR UNKNOWN INDICATION
     Dosage: 8 DF, DAILY FOR 3 DAYS
     Route: 048
  10. PREDNISONE. [Concomitant]
     Active Substance: PREDNISONE
     Dosage: 1 DF, DAILY FOR 3 DAYS
     Route: 048
  11. CICLESONIDE [Concomitant]
     Active Substance: CICLESONIDE
     Indication: PRODUCT USED FOR UNKNOWN INDICATION
     Dosage: 160 MG, BID
     Route: 065
  12. OMEPRAZOLE. [Concomitant]
     Active Substance: OMEPRAZOLE
     Indication: PRODUCT USED FOR UNKNOWN INDICATION
     Dosage: 1 DF, QD (1 IN 1 DAY)
     Route: 048
     Dates: start: 20120326
  13. NAPROXEN. [Suspect]
     Active Substance: NAPROXEN
     Indication: PRODUCT USED FOR UNKNOWN INDICATION
     Dosage: 500 MG
     Route: 048
     Dates: start: 20120216
  14. PREDNISONE. [Concomitant]
     Active Substance: PREDNISONE
     Dosage: 2 DF, DAILY FOR 3 DAYS
     Route: 048
  15. ALVESCO [Concomitant]
     Active Substance: CICLESONIDE
     Indication: PRODUCT USED FOR UNKNOWN INDICATION
     Dosage: 160 MCG/ACT, Q12H (1 PUFFS) AEROSOL SOLUTION
     Route: 055
     Dates: start: 20120118, end: 20120326
  16. ZYRTEC [Concomitant]
     Active Substance: CETIRIZINE HYDROCHLORIDE
     Indication: PRODUCT USED FOR UNKNOWN INDICATION
     Dosage: 10 MG, QD
     Route: 048
  17. PREDNISONE. [Concomitant]
     Active Substance: PREDNISONE
     Dosage: 4 DF, DAILY FOR 3 DAYS
     Route: 048
  18. VERAMYST [Concomitant]
     Active Substance: FLUTICASONE FUROATE
     Indication: PRODUCT USED FOR UNKNOWN INDICATION
     Dosage: 27.5 MCG/SPRAY
     Route: 045
     Dates: start: 20111014
  19. BACTRIM [Suspect]
     Active Substance: SULFAMETHOXAZOLE\TRIMETHOPRIM
     Indication: PRODUCT USED FOR UNKNOWN INDICATION
     Dosage: 10 MG, QD (1 IN 1 DAY)
     Route: 048
  20. ALBUTEROL SULFATE. [Concomitant]
     Active Substance: ALBUTEROL SULFATE
     Indication: PRODUCT USED FOR UNKNOWN INDICATION
     Dosage: 2.5MG/3ML
     Route: 055
     Dates: start: 20111121

REACTIONS (3)
  - Wheezing [Unknown]
  - Hypersensitivity [Unknown]
  - Asthma [Unknown]
